FAERS Safety Report 6909486-1 (Version None)
Quarter: 2010Q3

REPORT INFORMATION
  Report Type: 
  Country: None (occurrence: None)
  Receive Date: 20100803
  Receipt Date: 20100722
  Transmission Date: 20110219
  Serious: Yes (Hospitalization)
  Sender: FDA-Public Use
  Company Number: 2010SP037656

PATIENT
  Age: 43 Year
  Sex: Female
  Weight: 53 kg

DRUGS (2)
  1. CERAZETTE (DESOGESTREL /00754001/) [Suspect]
     Indication: DYSMENORRHOEA
     Dates: end: 20100101
  2. CERAZETTE (DESOGESTREL /00754001/) [Suspect]
     Indication: DYSMENORRHOEA
     Dates: start: 20100722

REACTIONS (1)
  - HEPATIC ENZYME INCREASED [None]
